FAERS Safety Report 6161817-9 (Version None)
Quarter: 2009Q2

REPORT INFORMATION
  Report Type: 
  Country: None (occurrence: None)
  Receive Date: 20090421
  Receipt Date: 20090414
  Transmission Date: 20091009
  Serious: Yes (Death)
  Sender: FDA-Public Use
  Company Number: FR-ROCHE-627527

PATIENT
  Sex: Male

DRUGS (1)
  1. INVIRASE [Suspect]
     Indication: DRUG USE FOR UNKNOWN INDICATION
     Route: 065

REACTIONS (1)
  - ALCOHOLIC LIVER DISEASE [None]
